FAERS Safety Report 11654684 (Version 1)
Quarter: 2015Q4

REPORT INFORMATION
  Report Type: Spontaneous
  Country: US (occurrence: US)
  Receive Date: 20151023
  Receipt Date: 20151023
  Transmission Date: 20160304
  Serious: No
  Sender: FDA-Public Use
  Company Number: US-PFIZER INC-2015340399

PATIENT
  Sex: Female

DRUGS (2)
  1. ADVIL PM [Suspect]
     Active Substance: DIPHENHYDRAMINE CITRATE\IBUPROFEN
     Indication: INSOMNIA
     Dosage: UNK UNK, DAILY
  2. METOPROLOL [Concomitant]
     Active Substance: METOPROLOL
     Indication: HYPERTENSION
     Dosage: UNK, DAILY

REACTIONS (9)
  - Asthenia [Unknown]
  - Abnormal behaviour [Unknown]
  - Feeling abnormal [Unknown]
  - Headache [Unknown]
  - Memory impairment [Unknown]
  - Disorientation [Unknown]
  - Mobility decreased [Unknown]
  - Hypersomnia [Unknown]
  - Dizziness [Unknown]
